FAERS Safety Report 21185138 (Version 10)
Quarter: 2024Q4

REPORT INFORMATION
  Report Type: Report from Study
  Country: US (occurrence: US)
  Receive Date: 20220808
  Receipt Date: 20241007
  Transmission Date: 20250115
  Serious: No
  Sender: NOVARTIS
  Company Number: US-NOVARTISTESTPH-NVSC2022US178644

PATIENT
  Sex: Female

DRUGS (1)
  1. COSENTYX [Suspect]
     Active Substance: SECUKINUMAB
     Indication: Psoriatic arthropathy
     Dosage: 300 MG, QMO (2X150MG/ML)
     Route: 058
     Dates: start: 202205

REACTIONS (3)
  - Arthralgia [Unknown]
  - Injection site pain [Not Recovered/Not Resolved]
  - Device issue [Unknown]
